FAERS Safety Report 25996518 (Version 2)
Quarter: 2025Q4

REPORT INFORMATION
  Report Type: Other
  Country: US (occurrence: US)
  Receive Date: 20251104
  Receipt Date: 20251108
  Transmission Date: 20260117
  Serious: Yes (Death)
  Sender: TRAVERE THERAPEUTICS
  Company Number: US-TRAVERE-2025TVT02089

PATIENT
  Age: 79 Year
  Sex: Male

DRUGS (13)
  1. FILSPARI [Suspect]
     Active Substance: SPARSENTAN
     Indication: Chronic kidney disease
     Route: 048
     Dates: start: 20231103
  2. FILSPARI [Suspect]
     Active Substance: SPARSENTAN
     Indication: Proteinuria
  3. FILSPARI [Suspect]
     Active Substance: SPARSENTAN
     Indication: IgA nephropathy
  4. TARPEYO [Concomitant]
     Active Substance: BUDESONIDE
  5. DOXAZOSIN [Concomitant]
     Active Substance: DOXAZOSIN MESYLATE
  6. PROPRANOLOL [Concomitant]
     Active Substance: PROPRANOLOL HYDROCHLORIDE
  7. RYTARY [Concomitant]
     Active Substance: CARBIDOPA\LEVODOPA
  8. BUDESONIDE [Concomitant]
     Active Substance: BUDESONIDE
  9. LEVOTHYROXINE [Concomitant]
     Active Substance: LEVOTHYROXINE
  10. ROPINIROLE [Concomitant]
     Active Substance: ROPINIROLE
  11. CALCITRIOL [Concomitant]
     Active Substance: CALCITRIOL
  12. CALCIUM [Concomitant]
     Active Substance: CALCIUM
  13. ROSUVASTATIN [Concomitant]
     Active Substance: ROSUVASTATIN

REACTIONS (1)
  - Death [Fatal]
